FAERS Safety Report 24324190 (Version 1)
Quarter: 2024Q3

REPORT INFORMATION
  Report Type: Spontaneous
  Country: US (occurrence: None)
  Receive Date: 20240916
  Receipt Date: 20240916
  Transmission Date: 20241016
  Serious: No
  Sender: Public
  Company Number: None

PATIENT
  Age: 42 Year
  Sex: Female

DRUGS (1)
  1. ADBRY [Suspect]
     Active Substance: TRALOKINUMAB-LDRM
     Indication: Neurodermatitis
     Dosage: INJECT 300MG(2 SYRINGES) SUBCUTANEOUSLY EVERY 2 WEEKS AS DIRECTED.?
     Route: 058
     Dates: start: 202402

REACTIONS (1)
  - COVID-19 [None]
